FAERS Safety Report 6830131-8 (Version None)
Quarter: 2010Q3

REPORT INFORMATION
  Report Type: 
  Country: None (occurrence: None)
  Receive Date: 20100711
  Receipt Date: 20100526
  Transmission Date: 20110219
  Serious: No
  Sender: FDA-Public Use
  Company Number: US-ALLERGAN-1006876US

PATIENT
  Age: 42 Year
  Sex: Female

DRUGS (12)
  1. LATISSE [Suspect]
     Indication: GROWTH OF EYELASHES
     Dosage: 1 GTT, UNK
     Route: 061
  2. NATURE THYROID [Concomitant]
     Dosage: UNK
  3. LOVAZA [Concomitant]
  4. MULTI-VITAMINS [Concomitant]
  5. 5-HTP [Concomitant]
  6. COQ10 [Concomitant]
  7. VITAMIN C                          /00008001/ [Concomitant]
  8. VITAMIN E                          /00110501/ [Concomitant]
  9. VITAMIN A [Concomitant]
  10. PROBIOTICS [Concomitant]
  11. CALCIUM CARBONATE [Concomitant]
  12. ESSENTIAL LASH [Concomitant]

REACTIONS (1)
  - TRICHORRHEXIS [None]
